FAERS Safety Report 16503835 (Version 2)
Quarter: 2019Q3

REPORT INFORMATION
  Report Type: Spontaneous
  Country: US (occurrence: US)
  Receive Date: 20190701
  Receipt Date: 20190723
  Transmission Date: 20191004
  Serious: No
  Sender: FDA-Public Use
  Company Number: US-PFIZER INC-2019269572

PATIENT
  Sex: Male

DRUGS (1)
  1. SEPTRA [Suspect]
     Active Substance: SULFAMETHOXAZOLE\TRIMETHOPRIM
     Indication: URTICARIA
     Dosage: UNK
     Route: 048
     Dates: start: 2013

REACTIONS (2)
  - Urticaria [Unknown]
  - Drug hypersensitivity [Unknown]
